FAERS Safety Report 19393956 (Version 2)
Quarter: 2021Q2

REPORT INFORMATION
  Report Type: Spontaneous
  Country: JP (occurrence: JP)
  Receive Date: 20210609
  Receipt Date: 20210611
  Transmission Date: 20210717
  Serious: Yes (Death)
  Sender: FDA-Public Use
  Company Number: JP-GLAXOSMITHKLINE-JP2021JPN013517

PATIENT
  Age: 68 Year
  Sex: Male
  Weight: 64.4 kg

DRUGS (18)
  1. VFEND TABLETS [Concomitant]
     Dosage: 400 MG, 1D
     Dates: start: 20210204, end: 20210205
  2. SAMTIREL [Suspect]
     Active Substance: ATOVAQUONE
     Dosage: 1 DF, QD
     Route: 048
     Dates: start: 20210129, end: 20210413
  3. STRONGER NEO?MINOPHAGEN C P INJECTION [Concomitant]
     Indication: LUNG DISORDER
     Dosage: 3 DF, 1D
     Dates: start: 20210105, end: 20210112
  4. FUROSEMIDE TABLETS [Concomitant]
     Active Substance: FUROSEMIDE
     Dosage: 20 MG, TID
     Dates: start: 20210106, end: 20210107
  5. MENATETRENONE CAPSULES [Concomitant]
     Dosage: 45 MG, 1D
  6. TAKECAB TABLETS [Concomitant]
     Active Substance: VONOPRAZAN FUMARATE
     Dosage: 10 MG, 1D
     Dates: start: 20201231
  7. SAMTIREL [Suspect]
     Active Substance: ATOVAQUONE
     Indication: PNEUMOCYSTIS JIROVECII PNEUMONIA
     Dosage: 5 ML, BID
     Route: 048
     Dates: start: 20210105, end: 20210108
  8. LEVOFLOXACIN TABLETS [Concomitant]
     Active Substance: LEVOFLOXACIN
     Indication: PNEUMONIA
     Dosage: 500 MG, 1D
     Dates: start: 20201228, end: 20210110
  9. FUROSEMIDE TABLETS [Concomitant]
     Active Substance: FUROSEMIDE
     Dosage: 20 MG, TID
     Dates: start: 20210104, end: 20210104
  10. BENAMBAX INJECTION [Concomitant]
     Dosage: 300 MG, QD
     Dates: start: 20210104, end: 20210105
  11. BENAMBAX INJECTION [Concomitant]
     Dosage: 240 MG, QD
     Dates: start: 20210106, end: 20210108
  12. DIFLUCAN CAPSULE [Concomitant]
     Dosage: 100 MG, 1D
     Dates: start: 20201231, end: 20210103
  13. BENAMBAX INJECTION [Concomitant]
     Indication: PNEUMOCYSTIS JIROVECII PNEUMONIA
     Dosage: 240 UNK
     Dates: start: 20201231, end: 20210102
  14. FUROSEMIDE TABLETS [Concomitant]
     Active Substance: FUROSEMIDE
     Indication: OEDEMA
     Dosage: 40 MG, TID
     Dates: start: 20210102, end: 20210103
  15. FUROSEMIDE TABLETS [Concomitant]
     Active Substance: FUROSEMIDE
     Dosage: 40 MG, TID
     Dates: start: 20210105, end: 20210105
  16. PREDONINE [Concomitant]
     Active Substance: PREDNISOLONE
     Indication: PNEUMOCYSTIS JIROVECII PNEUMONIA
     Dosage: 15 MG IN THE MORNING, 10 MG AT NOON, 5 MG AT EVENING, TID
     Dates: start: 20210105, end: 20210108
  17. DIFLUCAN CAPSULE [Concomitant]
     Dosage: 100 MG, 1D
     Dates: start: 20210108
  18. BENAMBAX INJECTION [Concomitant]
     Dosage: 200 MG, QD
     Dates: start: 20210103, end: 20210103

REACTIONS (5)
  - Asthenia [Fatal]
  - Pollakiuria [Recovered/Resolved]
  - Polyuria [Recovered/Resolved]
  - Malaise [Fatal]
  - Enuresis [Recovered/Resolved]

NARRATIVE: CASE EVENT DATE: 20210106
